FAERS Safety Report 7712307-0 (Version None)
Quarter: 2011Q3

REPORT INFORMATION
  Report Type: 
  Country: None (occurrence: None)
  Receive Date: 20110826
  Receipt Date: 20110822
  Transmission Date: 20111222
  Serious: Yes (Hospitalization, Other)
  Sender: FDA-Public Use
  Company Number: DE-PFIZER INC-2011181063

PATIENT
  Age: 68 Year
  Sex: Male
  Weight: 110 kg

DRUGS (5)
  1. LYRICA [Suspect]
     Indication: ANXIETY DISORDER
     Dosage: 25 MG, 1X/DAY
     Route: 048
  2. ATIVAN [Interacting]
     Indication: ANXIETY
     Dosage: 1 MG, AS NEEDED
     Route: 048
  3. PAROXETINE [Concomitant]
     Dosage: 20 MG, 1X/DAY
     Route: 048
  4. PRINZIDE [Concomitant]
     Dosage: 20 UNK, 1X/DAY
     Route: 048
  5. ALCOHOL [Interacting]
     Dosage: UNK
     Route: 048

REACTIONS (6)
  - DYSPNOEA [None]
  - HYPERHIDROSIS [None]
  - ALCOHOL INTERACTION [None]
  - DISTURBANCE IN ATTENTION [None]
  - CARDIOVASCULAR DISORDER [None]
  - SOMNOLENCE [None]
